FAERS Safety Report 7516444-5 (Version None)
Quarter: 2011Q2

REPORT INFORMATION
  Report Type: 
  Country: None (occurrence: None)
  Receive Date: 20110601
  Receipt Date: 20110531
  Transmission Date: 20111010
  Serious: No
  Sender: FDA-Public Use
  Company Number: US-ROXANE LABORATORIES, INC.-2011-RO-00438RO

PATIENT
  Sex: Male
  Weight: 61 kg

DRUGS (6)
  1. FLUTICASONE PROPIONATE [Suspect]
     Indication: UPPER-AIRWAY COUGH SYNDROME
     Dosage: 50 MCG
     Route: 045
     Dates: start: 20080901
  2. LUPRON [Concomitant]
     Indication: PROSTATE CANCER
  3. ZOMETTA [Concomitant]
     Indication: PROSTATE CANCER
  4. CASODEX [Concomitant]
     Indication: PROSTATE CANCER
  5. COUMADIN [Concomitant]
  6. FLUTICASONE PROPIONATE [Suspect]
     Indication: SINUS CONGESTION

REACTIONS (3)
  - AGEUSIA [None]
  - WEIGHT DECREASED [None]
  - DYSGEUSIA [None]
